FAERS Safety Report 5022947-8 (Version None)
Quarter: 2006Q2

REPORT INFORMATION
  Report Type: 
  Country: None (occurrence: None)
  Receive Date: 20060426
  Receipt Date: 20060221
  Transmission Date: 20061013
  Serious: Yes (Other)
  Sender: FDA-Public Use
  Company Number: 2006011329

PATIENT
  Age: 38 Year
  Sex: Female
  Weight: 61.2356 kg

DRUGS (2)
  1. LYRICA [Suspect]
     Indication: EPILEPSY
  2. CARBATROL [Suspect]
     Indication: EPILEPSY
     Dates: start: 20040101, end: 20050101

REACTIONS (1)
  - DRUG INEFFECTIVE [None]
